FAERS Safety Report 10935113 (Version 4)
Quarter: 2016Q1

REPORT INFORMATION
  Report Type: Spontaneous
  Country: FR (occurrence: FR)
  Receive Date: 20150320
  Receipt Date: 20160122
  Transmission Date: 20160525
  Serious: Yes (Death, Other)
  Sender: FDA-Public Use
  Company Number: FR-TAKEDA-2015TUS003263

PATIENT
  Age: 61 Year
  Sex: Male
  Weight: 72 kg

DRUGS (5)
  1. FIVASA                             /00747601/ [Concomitant]
     Active Substance: MESALAMINE
     Indication: CROHN^S DISEASE
     Dosage: 3.2 G, UNK
     Route: 048
     Dates: start: 20121031, end: 20150318
  2. COLOFAM [Concomitant]
     Indication: CROHN^S DISEASE
     Dosage: UNK, QD
     Route: 065
     Dates: end: 20150318
  3. ENTYVIO [Suspect]
     Active Substance: VEDOLIZUMAB
     Indication: ENTEROCOLITIS HAEMORRHAGIC
     Dosage: 300 MG, UNK
     Route: 042
     Dates: start: 20141201, end: 20150318
  4. PREDNISONE. [Concomitant]
     Active Substance: PREDNISONE
     Indication: CROHN^S DISEASE
     Dosage: 10 MG, UNK
     Route: 048
     Dates: end: 20150318
  5. ALTEIS [Concomitant]
     Active Substance: OLMESARTAN MEDOXOMIL
     Indication: HYPERTENSION
     Dosage: UNK, QD
     Route: 048
     Dates: end: 20150318

REACTIONS (2)
  - Sudden death [Fatal]
  - Cardiac arrest [Fatal]

NARRATIVE: CASE EVENT DATE: 20150318
